FAERS Safety Report 5118212-0 (Version None)
Quarter: 2006Q4

REPORT INFORMATION
  Report Type: 
  Country: None (occurrence: None)
  Receive Date: 20061002
  Receipt Date: 20060516
  Transmission Date: 20070319
  Serious: No
  Sender: FDA-Public Use
  Company Number: US-BRISTOL-MYERS SQUIBB COMPANY-13385877

PATIENT
  Age: 55 Year
  Sex: Female

DRUGS (5)
  1. ORENCIA [Suspect]
     Indication: RHEUMATOID ARTHRITIS
     Route: 042
     Dates: start: 20060502, end: 20060502
  2. TENORMIN [Concomitant]
  3. ACCUPRIL [Concomitant]
  4. PREDNISONE [Concomitant]
  5. ASPIRIN [Concomitant]

REACTIONS (3)
  - DYSPNOEA [None]
  - PRURITUS [None]
  - SCLERAL OEDEMA [None]
